FAERS Safety Report 18927197 (Version 1)
Quarter: 2021Q1

REPORT INFORMATION
  Report Type: Spontaneous
  Country: US (occurrence: US)
  Receive Date: 20210222
  Receipt Date: 20210222
  Transmission Date: 20210420
  Serious: Yes (Other)
  Sender: FDA-Public Use
  Company Number: None

PATIENT
  Age: 54 Year
  Sex: Female

DRUGS (20)
  1. TECFIDERA [Suspect]
     Active Substance: DIMETHYL FUMARATE
     Route: 048
  2. FAMOTIDINE 40 MG [Concomitant]
     Active Substance: FAMOTIDINE
     Dates: start: 20200324
  3. LOSARTAN 100 MG [Concomitant]
     Active Substance: LOSARTAN
     Dates: start: 20200324
  4. HUMALOG JR INJ 100/ML [Concomitant]
     Dates: start: 20200324
  5. METFORMIN [Concomitant]
     Active Substance: METFORMIN HYDROCHLORIDE
     Dates: start: 20200324
  6. ATORVASTATIN 40MG [Concomitant]
     Active Substance: ATORVASTATIN
     Dates: start: 20200324
  7. PROVIGIL 100 MG [Concomitant]
     Dates: start: 20181005
  8. COVID?19 VACCINE NOS. [Suspect]
     Active Substance: COVID-19 VACCINE NOS
  9. ASPIRIN 325 MG [Concomitant]
     Active Substance: ASPIRIN
     Dates: start: 20181005
  10. MAGNESIUM 250 MG [Concomitant]
     Dates: start: 20200324
  11. GABAPENTIN. [Concomitant]
     Active Substance: GABAPENTIN
     Dates: start: 20200324
  12. PANTOPRAZOLE 40 MG [Concomitant]
     Active Substance: PANTOPRAZOLE SODIUM
     Dates: start: 20200324
  13. VITAMIN B12 [Concomitant]
     Active Substance: CYANOCOBALAMIN
     Dates: start: 20200324
  14. BIOTIN [Concomitant]
     Active Substance: BIOTIN
     Dates: start: 20200324
  15. ZYRTEC [Concomitant]
     Active Substance: CETIRIZINE HYDROCHLORIDE
     Dates: start: 20200324
  16. GLIPIZIDE 10 MG [Concomitant]
     Active Substance: GLIPIZIDE
     Dates: start: 20200324
  17. BACLOFEN. [Concomitant]
     Active Substance: BACLOFEN
     Dates: start: 20200324
  18. ROZEREM 8 MG [Concomitant]
     Dates: start: 20200324
  19. AMLODIPINE 10 MG [Concomitant]
     Active Substance: AMLODIPINE BESYLATE
     Dates: start: 20200324
  20. MECLIZINE [Concomitant]
     Active Substance: MECLIZINE HYDROCHLORIDE
     Dates: start: 20200324

REACTIONS (6)
  - Fatigue [None]
  - Nausea [None]
  - Burning sensation [None]
  - Vaccination complication [None]
  - Illness [None]
  - Vomiting [None]

NARRATIVE: CASE EVENT DATE: 20210222
